FAERS Safety Report 4806587-9 (Version None)
Quarter: 2005Q4

REPORT INFORMATION
  Report Type: 
  Country: None (occurrence: None)
  Receive Date: 20051019
  Receipt Date: 20051003
  Transmission Date: 20060501
  Serious: Yes (Hospitalization)
  Sender: FDA-Public Use
  Company Number: 12686

PATIENT
  Age: 84 Year
  Sex: Male

DRUGS (10)
  1. CARBOPLATIN [Suspect]
     Indication: BLADDER CANCER
     Dosage: 100 MG Q3W IV
     Route: 042
     Dates: start: 20050407, end: 20050906
  2. CARBOPLATIN [Suspect]
     Indication: BLADDER CANCER
     Dosage: 300 MG ONCE IV
     Route: 042
     Dates: start: 20050719, end: 20050719
  3. LEVOTHYROXINE [Concomitant]
  4. FUROSEMIDE [Concomitant]
  5. SPIRONOLACTONE [Concomitant]
  6. MAG-OX [Concomitant]
  7. METOPROLOL [Concomitant]
  8. FILGRASTIM [Concomitant]
  9. TAXOL [Concomitant]
  10. ARANESP [Concomitant]

REACTIONS (5)
  - LOSS OF CONSCIOUSNESS [None]
  - MITRAL VALVE INCOMPETENCE [None]
  - MYOCARDIAL INFARCTION [None]
  - PULMONARY HYPERTENSION [None]
  - TRICUSPID VALVE INCOMPETENCE [None]
